FAERS Safety Report 8924112 (Version 3)
Quarter: 2012Q4

REPORT INFORMATION
  Report Type: 
  Country: JP (occurrence: JP)
  Receive Date: 20121126
  Receipt Date: 20121214
  Transmission Date: 20130627
  Serious: Yes (Other)
  Sender: FDA-Public Use
  Company Number: PHHY2012JP106619

PATIENT
  Age: 76 Year
  Sex: Male

DRUGS (7)
  1. SYMMETREL [Suspect]
     Indication: PARKINSON^S DISEASE
     Dosage: 200 mg, daily
     Route: 048
     Dates: start: 2002, end: 2012
  2. NEODOPASTON [Concomitant]
     Indication: PARKINSON^S DISEASE
     Dosage: 450 mg, UNK
     Route: 048
  3. CINAL [Concomitant]
     Dosage: 3 g, UNK
     Route: 048
  4. BAYASPIRIN [Concomitant]
     Indication: CEREBRAL INFARCTION
     Dosage: 100 mg, UNK
     Route: 048
  5. NORVASC [Concomitant]
     Indication: HYPERTENSION
     Dosage: 5 mg, UNK
     Route: 048
  6. EXCEGRAN [Concomitant]
     Dosage: 100 mg, UNK
     Route: 048
  7. PERMAX [Concomitant]
     Indication: PARKINSON^S DISEASE
     Dosage: 100 ug, UNK
     Route: 048

REACTIONS (4)
  - Corneal endothelial cell loss [Unknown]
  - Corneal disorder [Recovered/Resolved with Sequelae]
  - Corneal oedema [Recovering/Resolving]
  - Visual acuity reduced [Recovered/Resolved]
